FAERS Safety Report 17766615 (Version 2)
Quarter: 2020Q3

REPORT INFORMATION
  Report Type: Spontaneous
  Country: US (occurrence: US)
  Receive Date: 20200511
  Receipt Date: 20200717
  Transmission Date: 20201102
  Serious: No
  Sender: FDA-Public Use
  Company Number: US-VERTEX PHARMACEUTICALS-2020-010394

PATIENT
  Sex: Male

DRUGS (2)
  1. PULMOZYME [Concomitant]
     Active Substance: DORNASE ALFA
  2. TRIKAFTA [Suspect]
     Active Substance: ELEXACAFTOR\IVACAFTOR\TEZACAFTOR
     Indication: CYSTIC FIBROSIS
     Dosage: 2 ORANGE TABS100MG ELEXACAFTOR/ 50MG TEZACAFTOR/ 75MG IVACAFTOR AM;1 BLUE TAB150MG IVACAFTOR PM
     Route: 048
     Dates: start: 20191218

REACTIONS (3)
  - Hypophagia [Recovering/Resolving]
  - Anxiety [Recovering/Resolving]
  - Illness [Unknown]
